FAERS Safety Report 7396840-X (Version None)
Quarter: 2011Q1

REPORT INFORMATION
  Report Type: 
  Country: None (occurrence: None)
  Receive Date: 20110328
  Receipt Date: 20110209
  Transmission Date: 20110831
  Serious: No
  Sender: FDA-Public Use
  Company Number: 2011-00049

PATIENT
  Age: 60 Year
  Sex: Female
  Weight: 47.6277 kg

DRUGS (4)
  1. IMIPRAMINE [Concomitant]
  2. ZICAM COLD REMEDY ORAL MIST [Suspect]
     Dosage: ONCE
     Dates: start: 20110209, end: 20110209
  3. VALIUM [Concomitant]
  4. VITAMIN D [Concomitant]

REACTIONS (1)
  - AGEUSIA [None]
